FAERS Safety Report 18133867 (Version 1)
Quarter: 2020Q3

REPORT INFORMATION
  Report Type: Spontaneous
  Country: GB (occurrence: GB)
  Receive Date: 20200811
  Receipt Date: 20200811
  Transmission Date: 20201103
  Serious: Yes (Hospitalization, Other)
  Sender: FDA-Public Use
  Company Number: GB-PERRIGO-20GB010750

PATIENT

DRUGS (3)
  1. LOPERAMIDE HYDROCHLORIDE. [Suspect]
     Active Substance: LOPERAMIDE HYDROCHLORIDE
     Indication: DIARRHOEA
     Dosage: 2 AT 6.30 AM, 2 14.30 (ON ADVICE OF 111 DOCTOR) 1 PM, 1AM, 1 13.30
     Route: 048
     Dates: start: 20200713, end: 20200714
  2. FOSTAIR [Concomitant]
     Active Substance: BECLOMETHASONE\FORMOTEROL
  3. LANSOPRAZOLE. [Concomitant]
     Active Substance: LANSOPRAZOLE

REACTIONS (3)
  - Loss of consciousness [Recovered/Resolved]
  - White blood cell count increased [Unknown]
  - Feeling hot [Unknown]

NARRATIVE: CASE EVENT DATE: 20200713
